FAERS Safety Report 8036121-4 (Version None)
Quarter: 2012Q1

REPORT INFORMATION
  Report Type: 
  Country: None (occurrence: None)
  Receive Date: 20120106
  Receipt Date: 20111230
  Transmission Date: 20120608
  Serious: Yes (Death, Other)
  Sender: FDA-Public Use
  Company Number: 2011SP056524

PATIENT
  Age: 87 Year
  Sex: Female
  Weight: 70 kg

DRUGS (3)
  1. SYCREST (ASENAPINE /05706901/) [Suspect]
     Indication: MANIA
     Dosage: 5 MG;QD;PO
     Route: 048
     Dates: start: 20111027, end: 20111128
  2. EXELON [Concomitant]
  3. SERTRALINE HYDROCHLORIDE [Concomitant]

REACTIONS (1)
  - GRAND MAL CONVULSION [None]
